FAERS Safety Report 8740900 (Version 2)
Quarter: 2013Q4

REPORT INFORMATION
  Report Type: Spontaneous
  Country: CA (occurrence: CA)
  Receive Date: 20120823
  Receipt Date: 20131031
  Transmission Date: 20140711
  Serious: Yes (Hospitalization, Other)
  Sender: FDA-Public Use
  Company Number: CA-009507513-1208CAN008429

PATIENT
  Sex: Male

DRUGS (1)
  1. EZETROL [Suspect]
     Indication: PRODUCT USED FOR UNKNOWN INDICATION
     Dosage: 10 MG, UNK
     Route: 048

REACTIONS (3)
  - Paralysis [Recovering/Resolving]
  - Brain injury [Recovering/Resolving]
  - Accident [Recovering/Resolving]
